FAERS Safety Report 7525098-3 (Version None)
Quarter: 2011Q2

REPORT INFORMATION
  Report Type: 
  Country: None (occurrence: None)
  Receive Date: 20110606
  Receipt Date: 20090731
  Transmission Date: 20111010
  Serious: Yes (Other)
  Sender: FDA-Public Use
  Company Number: US-BAYER-200928862NA

PATIENT
  Age: 77 Year
  Sex: Male
  Weight: 82 kg

DRUGS (27)
  1. LIPITOR [Concomitant]
     Dosage: UNK
     Dates: start: 19900101
  2. GENTAMYCIN SULFATE [Concomitant]
     Dosage: 80MG
     Dates: start: 20070321
  3. LIDOCAINE [Concomitant]
     Dosage: 200 MG, UNK
     Dates: start: 20070321, end: 20070321
  4. FRESH FROZEN PLASMA [Concomitant]
     Dosage: 2 UNITS
     Route: 042
  5. SPIRIVA [Concomitant]
     Dosage: UNK
     Route: 042
     Dates: start: 19900101, end: 20070101
  6. ACETYLSALICYLIC ACID SRT [Concomitant]
     Dosage: 81 MG, QD
     Route: 048
  7. MORPHINE [Concomitant]
  8. PREDNISONE [Concomitant]
     Dosage: UNK
     Dates: start: 20061101, end: 20070301
  9. HEPARIN [Concomitant]
     Dosage: 47000 UNITS
     Dates: start: 20070321
  10. TRASYLOL [Suspect]
     Dosage: 50ML/HOUR INFUSION
     Route: 042
     Dates: start: 20070321, end: 20070321
  11. DOPAMINE HCL [Concomitant]
     Dosage: UNK
     Dates: start: 20070321
  12. NIPRIDE [Concomitant]
     Dosage: UNK
     Dates: start: 20070321, end: 20070321
  13. ZETIA [Concomitant]
     Dosage: UNK
     Route: 048
     Dates: start: 19900101, end: 20080101
  14. FLONASE [Concomitant]
     Dosage: UNK
     Dates: start: 19900101, end: 20070101
  15. GENTAMYCIN SULFATE [Concomitant]
     Dosage: 60 MG, UNK
     Dates: start: 20070305, end: 20070314
  16. ALBUMIN (HUMAN) [Concomitant]
     Dosage: 100 ML, UNK
     Dates: start: 20070321
  17. TRASYLOL [Suspect]
     Indication: HEART VALVE REPLACEMENT
     Dosage: 200 ML LOADING DOSE
     Route: 042
     Dates: start: 20070321, end: 20070321
  18. AMPICILLIN SODIUM [Concomitant]
     Dosage: UNK
     Dates: start: 20070321
  19. UNASYN [Concomitant]
     Dosage: 3 G, UNK
     Dates: start: 20070321, end: 20070321
  20. VERSED [Concomitant]
     Dosage: UNK
     Dates: start: 20070321, end: 20070321
  21. NEOSYNEPHRINE [Concomitant]
     Dosage: UNK
     Dates: start: 20070321
  22. MICARDIS [Concomitant]
     Dosage: 80 MG, QD
     Route: 048
     Dates: start: 20050101, end: 20090101
  23. ADVAIR DISKUS 100/50 [Concomitant]
     Dosage: UNK
     Dates: start: 19900101, end: 20070101
  24. PROTAMINE SULFATE [Concomitant]
     Dosage: 39 CC
     Dates: start: 20070321, end: 20070321
  25. FENTANYL [Concomitant]
     Dosage: UNK
     Dates: start: 20070321, end: 20070321
  26. ANCEF [Concomitant]
  27. THROMBIN LOCAL SOLUTION [Concomitant]
     Dosage: 10000 UNITS
     Dates: start: 20070321

REACTIONS (14)
  - ANXIETY [None]
  - EMOTIONAL DISTRESS [None]
  - DEPRESSION [None]
  - ANAEMIA [None]
  - RENAL FAILURE [None]
  - UNEVALUABLE EVENT [None]
  - SKIN IRRITATION [None]
  - FEAR [None]
  - NERVOUSNESS [None]
  - PAIN [None]
  - INJURY [None]
  - MUSCLE ATROPHY [None]
  - OEDEMA [None]
  - MENTAL STATUS CHANGES [None]
